FAERS Safety Report 12774562 (Version 3)
Quarter: 2017Q1

REPORT INFORMATION
  Report Type: Spontaneous
  Country: US (occurrence: US)
  Receive Date: 20160923
  Receipt Date: 20170223
  Transmission Date: 20170428
  Serious: Yes (Life-Threatening, Hospitalization, Other)
  Sender: FDA-Public Use
  Company Number: US-APOTEX-2016AP012430

PATIENT
  Age: 12 Year
  Sex: Male

DRUGS (26)
  1. RISPERIDONE. [Interacting]
     Active Substance: RISPERIDONE
     Dosage: 1 MG AT BEDTIME
     Route: 065
  2. VALPROIC ACID ORAL SOLUTION USP [Suspect]
     Active Substance: VALPROIC ACID
     Dosage: 500 MG AT BEDTIME
     Route: 065
  3. PRAMIPEXOLE. [Suspect]
     Active Substance: PRAMIPEXOLE
     Dosage: AT BEDTIME
     Route: 065
  4. METHYLPHENIDATE HYDROCHLORIDE. [Suspect]
     Active Substance: METHYLPHENIDATE HYDROCHLORIDE
     Dosage: ONCE IN MORNING Q. A.M,
     Route: 065
  5. RISPERIDONE. [Interacting]
     Active Substance: RISPERIDONE
     Dosage: 0.5 MG Q AM
     Route: 065
  6. VALPROIC ACID ORAL SOLUTION USP [Suspect]
     Active Substance: VALPROIC ACID
     Indication: PRODUCT USED FOR UNKNOWN INDICATION
     Dosage: 375 MG Q AM
     Route: 065
  7. METHYLPHENIDATE HYDROCHLORIDE. [Suspect]
     Active Substance: METHYLPHENIDATE HYDROCHLORIDE
     Indication: PRODUCT USED FOR UNKNOWN INDICATION
     Dosage: ONCE IN MORNING
     Route: 065
  8. RISPERIDONE. [Interacting]
     Active Substance: RISPERIDONE
     Indication: PRODUCT USED FOR UNKNOWN INDICATION
     Dosage: 0.5 MG, BID
     Route: 065
  9. RISPERIDONE. [Interacting]
     Active Substance: RISPERIDONE
     Dosage: 0.5 MG Q AM
     Route: 065
  10. VALPROIC ACID ORAL SOLUTION USP [Suspect]
     Active Substance: VALPROIC ACID
     Dosage: 500 MG AT BEDTIME
     Route: 065
  11. VALPROIC ACID ORAL SOLUTION USP [Suspect]
     Active Substance: VALPROIC ACID
     Dosage: 375 MG Q AM
     Route: 065
  12. VALPROIC ACID ORAL SOLUTION USP [Suspect]
     Active Substance: VALPROIC ACID
     Dosage: 500 MG AT BEDTIME
     Route: 065
  13. METHYLPHENIDATE HYDROCHLORIDE. [Suspect]
     Active Substance: METHYLPHENIDATE HYDROCHLORIDE
     Dosage: ONCE IN MORNING
     Route: 065
  14. VALPROIC ACID ORAL SOLUTION USP [Suspect]
     Active Substance: VALPROIC ACID
     Dosage: 375 MG Q AM
     Route: 065
  15. PRAMIPEXOLE. [Suspect]
     Active Substance: PRAMIPEXOLE
     Dosage: AT BEDTIME
     Route: 065
  16. RISPERIDONE. [Interacting]
     Active Substance: RISPERIDONE
     Dosage: 1 MG AT BEDTIME
     Route: 065
  17. PRAMIPEXOLE. [Suspect]
     Active Substance: PRAMIPEXOLE
     Indication: PRODUCT USED FOR UNKNOWN INDICATION
     Dosage: AT BEDTIME
     Route: 065
  18. PAROXETINE HYDROCHLORIDE. [Interacting]
     Active Substance: PAROXETINE HYDROCHLORIDE
     Dosage: PAROXETINE 40 MG Q AM
     Route: 065
  19. PAROXETINE HYDROCHLORIDE. [Interacting]
     Active Substance: PAROXETINE HYDROCHLORIDE
     Dosage: PAROXETINE 40 MG Q AM
     Route: 065
  20. RISPERIDONE. [Interacting]
     Active Substance: RISPERIDONE
     Dosage: 0.5 MG, BID
     Route: 065
  21. RISPERIDONE. [Interacting]
     Active Substance: RISPERIDONE
     Dosage: 1 MG AT BEDTIME
     Route: 065
  22. MELATONIN [Concomitant]
     Active Substance: MELATONIN
     Dosage: AT BEDTIME AS NEEDED
     Route: 065
  23. PAROXETINE HYDROCHLORIDE. [Suspect]
     Active Substance: PAROXETINE HYDROCHLORIDE
     Indication: PRODUCT USED FOR UNKNOWN INDICATION
     Dosage: PAROXETINE 40 MG Q AM
     Route: 065
  24. RISPERIDONE. [Interacting]
     Active Substance: RISPERIDONE
     Dosage: 0.5 MG Q AM
     Route: 065
  25. MELATONIN [Concomitant]
     Active Substance: MELATONIN
     Dosage: AT BEDTIME AS NEEDED
     Route: 065
  26. RISPERIDONE. [Interacting]
     Active Substance: RISPERIDONE
     Dosage: 0.5 MG, BID
     Route: 065

REACTIONS (2)
  - Drug interaction [Recovering/Resolving]
  - Neuroleptic malignant syndrome [Recovering/Resolving]
